FAERS Safety Report 13465955 (Version 1)
Quarter: 2017Q2

REPORT INFORMATION
  Report Type: Spontaneous
  Country: US (occurrence: US)
  Receive Date: 20170421
  Receipt Date: 20170421
  Transmission Date: 20170830
  Serious: No
  Sender: FDA-Public Use
  Company Number: US-009507513-1704USA007024

PATIENT
  Sex: Female

DRUGS (2)
  1. SOMA [Concomitant]
     Active Substance: CARISOPRODOL
  2. NEXPLANON [Suspect]
     Active Substance: ETONOGESTREL
     Indication: PRODUCT USED FOR UNKNOWN INDICATION
     Route: 059

REACTIONS (1)
  - Amenorrhoea [Recovered/Resolved]
